FAERS Safety Report 5964385-7 (Version None)
Quarter: 2008Q4

REPORT INFORMATION
  Report Type: 
  Country: None (occurrence: None)
  Receive Date: 20081124
  Receipt Date: 20081114
  Transmission Date: 20090506
  Serious: No
  Sender: FDA-Public Use
  Company Number: GB-PFIZER INC-2008096750

PATIENT
  Age: 18 Month

DRUGS (4)
  1. ANTI-THYMOCYTE GLOBULIN NOS [Suspect]
     Indication: CORD BLOOD TRANSPLANT THERAPY
  2. CYCLOPHOSPHAMIDE [Suspect]
     Indication: CORD BLOOD TRANSPLANT THERAPY
  3. CYCLOSPORINE [Suspect]
     Indication: CORD BLOOD TRANSPLANT THERAPY
  4. TREOSULFAN [Suspect]
     Indication: CORD BLOOD TRANSPLANT THERAPY

REACTIONS (1)
  - NO ADVERSE EVENT [None]
